FAERS Safety Report 5912894-9 (Version None)
Quarter: 2008Q4

REPORT INFORMATION
  Report Type: 
  Country: None (occurrence: None)
  Receive Date: 20081006
  Receipt Date: 20080919
  Transmission Date: 20090506
  Serious: Yes (Disabling)
  Sender: FDA-Public Use
  Company Number: 8037524

PATIENT
  Age: 55 Year
  Sex: Female

DRUGS (3)
  1. PREDNISOLONE [Suspect]
  2. CHLOROQUINE [Suspect]
     Dosage: 200 MG /D
  3. INDOMETHACIN [Suspect]

REACTIONS (2)
  - DEAFNESS [None]
  - TINNITUS [None]
